FAERS Safety Report 8750121 (Version 2)
Quarter: 2013Q1

REPORT INFORMATION
  Report Type: Spontaneous
  Country: US (occurrence: None)
  Receive Date: 20120810
  Receipt Date: 20121113
  Transmission Date: 20140127
  Serious: Yes (Hospitalization)
  Sender: FDA-Public Use
  Company Number: 2012HGS-003721

PATIENT
  Age: 40 Year
  Sex: Female
  Weight: 145.15 kg

DRUGS (22)
  1. BENLYSTA [Suspect]
     Indication: SYSTEMIC LUPUS ERYTHEMATOSUS
     Dosage: 1 IN 1 28 D
     Route: 041
     Dates: start: 20120419
  2. PLAQUENIL [Concomitant]
  3. CELLCEPT [Concomitant]
  4. METFORMIN HYDROCHLORIDE [Concomitant]
  5. BACLOFEN [Concomitant]
  6. MS CONTIN [Concomitant]
  7. PREDNISONE (PREDNISONE) [Concomitant]
  8. RANITIDINE (RANITIDINE) [Concomitant]
  9. CALCIUM (CALCIUM) (CALCIUM) [Concomitant]
  10. VITAMIN C [Concomitant]
  11. PLAVIX [Concomitant]
  12. ALDACTONE [Concomitant]
  13. PROPRANOLOL [Concomitant]
  14. PRAVASTATIN [Concomitant]
  15. ACIPHEX [Concomitant]
  16. RECLAST [Concomitant]
  17. ZOFRAN [Concomitant]
  18. COMPAZINE [Concomitant]
  19. DULCOLAX (BISACODYL) [Concomitant]
  20. DEPO-PROVERA [Concomitant]
  21. FENTORA [Concomitant]
  22. GABAPENTIN [Concomitant]

REACTIONS (8)
  - Dehydration [None]
  - Diarrhoea [None]
  - Hyperhidrosis [None]
  - Chills [None]
  - Stomatitis [None]
  - Decreased appetite [None]
  - Weight decreased [None]
  - Pyrexia [None]
